FAERS Safety Report 14660283 (Version 1)
Quarter: 2018Q1

REPORT INFORMATION
  Report Type: Spontaneous
  Country: DE (occurrence: DE)
  Receive Date: 20180320
  Receipt Date: 20180320
  Transmission Date: 20180509
  Serious: Yes (Hospitalization)
  Sender: FDA-Public Use
  Company Number: DE-PFIZER INC-2018109018

PATIENT
  Age: 91 Year
  Sex: Female

DRUGS (9)
  1. MOXONIDIN [Concomitant]
     Active Substance: MOXONIDINE
     Dosage: UNK
  2. DIGITOXIN [Concomitant]
     Active Substance: DIGITOXIN
     Dosage: UNK
  3. AMLODIPINE [Concomitant]
     Active Substance: AMLODIPINE BESYLATE
     Dosage: UNK
  4. LYRICA [Suspect]
     Active Substance: PREGABALIN
     Indication: TRIGEMINAL NEURALGIA
     Dosage: 75 MG, UNK
     Dates: start: 20180111, end: 20180113
  5. TROXERUTIN [Concomitant]
     Active Substance: TROXERUTIN
     Dosage: UNK
  6. HYDROCHLOROTHIAZID [Concomitant]
     Active Substance: HYDROCHLOROTHIAZIDE
     Dosage: UNK
  7. BISOPROLOL [Concomitant]
     Active Substance: BISOPROLOL
     Dosage: UNK
  8. ELIQUIS [Concomitant]
     Active Substance: APIXABAN
     Dosage: UNK
  9. TORASEMID [Concomitant]
     Active Substance: TORSEMIDE
     Dosage: UNK

REACTIONS (8)
  - Confusional state [Unknown]
  - Diplopia [Recovered/Resolved]
  - Headache [Unknown]
  - Gait inability [Recovered/Resolved]
  - Hallucination [Unknown]
  - Fall [Unknown]
  - Speech disorder [Unknown]
  - Feeling abnormal [Unknown]

NARRATIVE: CASE EVENT DATE: 20180112
